FAERS Safety Report 9848033 (Version 1)
Quarter: 2014Q1

REPORT INFORMATION
  Report Type: Spontaneous
  Country: BR (occurrence: BR)
  Receive Date: 20140128
  Receipt Date: 20140128
  Transmission Date: 20141002
  Serious: Yes (Hospitalization)
  Sender: FDA-Public Use
  Company Number: BR-AMGEN-BRASP2014005393

PATIENT
  Age: 48 Year
  Sex: Female
  Weight: 65 kg

DRUGS (4)
  1. ENBREL [Suspect]
     Indication: RHEUMATOID ARTHRITIS
     Dosage: 50 MG, ONCE WEEKLY
     Route: 058
     Dates: start: 201105
  2. PRELONE                            /00016201/ [Concomitant]
     Indication: CEREBROVASCULAR ACCIDENT PROPHYLAXIS
     Dosage: 5 MG (ONE TABLET), 1X/DAY (EVERY NIGHT)
     Dates: start: 201307
  3. SOMALGIN [Concomitant]
     Indication: CEREBROVASCULAR ACCIDENT PROPHYLAXIS
     Dosage: 325 MG (ONE TABLET), 1X/DAY (IN THE MRONING)
     Dates: start: 201307
  4. SIMVASTATIN [Concomitant]
     Indication: CEREBROVASCULAR ACCIDENT PROPHYLAXIS
     Dosage: 20 MG (ONE TABLET), 1X/DAY (AT NIGHT)
     Dates: start: 201307

REACTIONS (3)
  - Ischaemic stroke [Unknown]
  - Endometrial hyperplasia [Unknown]
  - Fear [Unknown]
